FAERS Safety Report 20007063 (Version 1)
Quarter: 2021Q4

REPORT INFORMATION
  Report Type: Spontaneous
  Country: SE (occurrence: SE)
  Receive Date: 20211028
  Receipt Date: 20211028
  Transmission Date: 20220303
  Serious: Yes (Hospitalization, Disabling, Other)
  Sender: FDA-Public Use
  Company Number: None

PATIENT
  Age: 53 Year
  Sex: Female

DRUGS (7)
  1. NUCALA [Suspect]
     Active Substance: MEPOLIZUMAB
     Indication: Eosinophilic pneumonia
     Dosage: 100 MG, 4 WE
     Route: 058
     Dates: start: 20190108, end: 202001
  2. NUCALA [Suspect]
     Active Substance: MEPOLIZUMAB
     Dosage: 100 MG, 8 WE
     Route: 058
     Dates: start: 202001, end: 20200302
  3. FASENRA [Suspect]
     Active Substance: BENRALIZUMAB
     Indication: Eosinophilic pneumonia
     Dosage: 30 MG, 4 WE
     Route: 058
     Dates: start: 20200303, end: 20200430
  4. FASENRA [Suspect]
     Active Substance: BENRALIZUMAB
     Dosage: 30 MG, 8 WE
     Route: 058
     Dates: start: 20200501, end: 20210903
  5. ALBUTEROL SULFATE [Concomitant]
     Active Substance: ALBUTEROL SULFATE
     Indication: Product used for unknown indication
     Dosage: 1 DF, ASNECESSARY
     Route: 065
  6. DYMISTA [Concomitant]
     Active Substance: AZELASTINE HYDROCHLORIDE\FLUTICASONE PROPIONATE
     Indication: Product used for unknown indication
     Dosage: 2 DF, QD
     Route: 065
  7. ALVESCO [Concomitant]
     Active Substance: CICLESONIDE
     Indication: Product used for unknown indication
     Dosage: 4 DF, QD
     Route: 065

REACTIONS (1)
  - Multiple sclerosis [Not Recovered/Not Resolved]

NARRATIVE: CASE EVENT DATE: 20210824
